FAERS Safety Report 24415616 (Version 1)
Quarter: 2024Q4

REPORT INFORMATION
  Report Type: Spontaneous
  Country: NZ (occurrence: NZ)
  Receive Date: 20241009
  Receipt Date: 20241009
  Transmission Date: 20250115
  Serious: Yes (Death)
  Sender: MYLAN
  Company Number: NZ-MYLANLABS-2024M1091892

PATIENT
  Age: 51 Year
  Sex: Male

DRUGS (2)
  1. CLOZARIL [Suspect]
     Active Substance: CLOZAPINE
     Indication: Schizophrenia
     Dosage: UNK
     Route: 048
     Dates: start: 20010719
  2. RISPERDAL CONSTA [Concomitant]
     Active Substance: RISPERIDONE
     Dosage: UNK, Q2W (EVERY 2 WEEKS)
     Route: 065

REACTIONS (1)
  - Death [Fatal]

NARRATIVE: CASE EVENT DATE: 20241002
